FAERS Safety Report 5691972-6 (Version None)
Quarter: 2008Q2

REPORT INFORMATION
  Report Type: 
  Country: None (occurrence: None)
  Receive Date: 20080402
  Receipt Date: 20080321
  Transmission Date: 20081010
  Serious: Yes (Death)
  Sender: FDA-Public Use
  Company Number: JP-JNJFOC-20080305467

PATIENT
  Age: 70 Year
  Sex: Male

DRUGS (3)
  1. DUROTEP [Suspect]
     Indication: CANCER PAIN
     Route: 062
  2. ANTIBIOTIC [Concomitant]
     Route: 065
  3. SANDOSTATIN [Concomitant]
     Route: 065

REACTIONS (2)
  - DISEASE PROGRESSION [None]
  - MUSCLE TWITCHING [None]
